FAERS Safety Report 9856619 (Version 1)
Quarter: 2014Q1

REPORT INFORMATION
  Report Type: Report from Study
  Country: GB (occurrence: GB)
  Receive Date: 20140130
  Receipt Date: 20140130
  Transmission Date: 20141002
  Serious: Yes (Hospitalization, Other)
  Sender: FDA-Public Use
  Company Number: GB-PFIZER INC-2014022332

PATIENT
  Age: 70 Year
  Sex: Male

DRUGS (7)
  1. CELECOXIB [Suspect]
     Indication: OSTEOARTHRITIS
     Dosage: 100 MG, 2X/DAY
     Route: 048
     Dates: start: 20111111, end: 20131218
  2. DILTIAZEM [Suspect]
     Dosage: 60 MG, 2X/DAY
     Dates: start: 20131211, end: 20131218
  3. CANDESARTAN CILEXETIL [Concomitant]
     Dosage: 8 MG, 1X/DAY
     Dates: start: 20130304
  4. FELODIPINE [Concomitant]
     Dosage: 5 MG, 1X/DAY
     Dates: start: 20041025
  5. FINASTERIDE [Concomitant]
     Dosage: 5 MG, 1X/DAY
     Dates: start: 20121005
  6. LANSOPRAZOLE [Concomitant]
     Dosage: 30 MG, 1X/DAY
     Dates: start: 20120801
  7. ASPIRIN [Concomitant]
     Dosage: 75 MG, 1X/DAY
     Dates: start: 20131211

REACTIONS (1)
  - Presyncope [Recovered/Resolved]
